FAERS Safety Report 8088908-X (Version None)
Quarter: 2012Q1

REPORT INFORMATION
  Report Type: 
  Country: None (occurrence: None)
  Receive Date: 20120128
  Receipt Date: 20110623
  Transmission Date: 20120608
  Serious: No
  Sender: FDA-Public Use
  Company Number: US-ABBOTT-10P-163-0634590-00

PATIENT
  Age: 28 Year
  Sex: Female
  Weight: 62.198 kg

DRUGS (5)
  1. FOLIC ACID [Concomitant]
     Indication: PRODUCT USED FOR UNKNOWN INDICATION
  2. MULTI-VITAMINS [Concomitant]
     Indication: VITAMIN SUPPLEMENTATION
  3. ASACOL [Concomitant]
     Indication: CROHN'S DISEASE
     Dosage: 400 MG - TWO TABLETS TID
  4. HUMIRA [Suspect]
     Indication: CROHN'S DISEASE
     Route: 058
     Dates: start: 20080901
  5. ASACOL [Concomitant]

REACTIONS (5)
  - INJECTION SITE PAPULE [None]
  - INJECTION SITE PAIN [None]
  - HEADACHE [None]
  - INJECTION SITE ERYTHEMA [None]
  - INJECTION SITE PRURITUS [None]
